FAERS Safety Report 8827274 (Version 1)
Quarter: 2012Q4

REPORT INFORMATION
  Report Type: 
  Country: BR (occurrence: BR)
  Receive Date: 20121005
  Receipt Date: 20121005
  Transmission Date: 20130627
  Serious: Yes (Other)
  Sender: FDA-Public Use
  Company Number: BR-ROCHE-1088571

PATIENT
  Age: 59 Year
  Sex: Female
  Weight: 81 kg

DRUGS (10)
  1. RITUXIMAB [Suspect]
     Indication: LYMPHOMA
     Dosage: 100mg/10ml
     Route: 042
     Dates: start: 20120712
  2. RITUXIMAB [Suspect]
     Dosage: 500 mg/50ml
     Route: 042
  3. CYCLOPHOSPHAMIDE [Concomitant]
     Indication: LYMPHOMA
     Route: 040
     Dates: start: 20120712
  4. DOXORUBICIN [Concomitant]
     Indication: LYMPHOMA
     Route: 040
     Dates: start: 20120712
  5. VINCRISTINE [Concomitant]
     Indication: LYMPHOMA
     Route: 040
     Dates: start: 20120712
  6. PREDNISONE [Concomitant]
     Indication: LYMPHOMA
     Route: 065
  7. PARACETAMOL [Concomitant]
  8. GRANISETRON [Concomitant]
     Indication: NAUSEA
     Dosage: 1 mg/day/cycle
     Route: 042
     Dates: start: 20120712
  9. GRANISETRON [Concomitant]
     Indication: VOMITING
  10. DEXAMETHASONE [Concomitant]
     Indication: PREMEDICATION
     Dosage: 10 mg/day/cycle
     Route: 042
     Dates: start: 20120712

REACTIONS (1)
  - Tremor [Recovered/Resolved]
